FAERS Safety Report 8941635 (Version 2)
Quarter: 2013Q1

REPORT INFORMATION
  Report Type: Report from Study
  Country: US (occurrence: US)
  Receive Date: 20121203
  Receipt Date: 20130206
  Transmission Date: 20140127
  Serious: Yes (Death, Hospitalization, Other)
  Sender: FDA-Public Use
  Company Number: US-ROCHE-1158740

PATIENT
  Age: 58 Year
  Sex: Female

DRUGS (1)
  1. XELODA [Suspect]
     Indication: NEOPLASM MALIGNANT
     Route: 065
     Dates: start: 20061222, end: 20081124

REACTIONS (4)
  - Breast cancer metastatic [Fatal]
  - Dyspnoea [Unknown]
  - Wheezing [Unknown]
  - Metastases to bone [Unknown]
